FAERS Safety Report 5318763-X (Version None)
Quarter: 2007Q2

REPORT INFORMATION
  Report Type: 
  Country: None (occurrence: None)
  Receive Date: 20070504
  Receipt Date: 20070504
  Transmission Date: 20071010
  Serious: Yes (Hospitalization)
  Sender: FDA-Public Use
  Company Number: None

PATIENT
  Age: 76 Year
  Sex: Male

DRUGS (1)
  1. SIMVASTATIN [Suspect]
     Indication: HYPERLIPIDAEMIA
     Dosage: 10MG QPM PO
     Route: 048
     Dates: start: 20070110, end: 20070209

REACTIONS (8)
  - CONGENITAL CYSTIC KIDNEY DISEASE [None]
  - FLUID OVERLOAD [None]
  - HEPATIC ENZYME INCREASED [None]
  - INTERNATIONAL NORMALISED RATIO INCREASED [None]
  - METABOLIC ACIDOSIS [None]
  - RENAL IMPAIRMENT [None]
  - RESPIRATORY ALKALOSIS [None]
  - RHABDOMYOLYSIS [None]
